FAERS Safety Report 7898158-5 (Version None)
Quarter: 2011Q4

REPORT INFORMATION
  Report Type: 
  Country: None (occurrence: None)
  Receive Date: 20111107
  Receipt Date: 20111102
  Transmission Date: 20120403
  Serious: Yes (Other)
  Sender: FDA-Public Use
  Company Number: AU-MERCK-1110USA01692

PATIENT
  Age: 56 Year
  Sex: Male

DRUGS (3)
  1. DIAMICRON [Concomitant]
     Route: 065
     Dates: end: 20110101
  2. JANUMET [Suspect]
     Indication: DIABETES MELLITUS
     Route: 048
     Dates: start: 20110512, end: 20111010
  3. METFORMIN HCL [Concomitant]
     Route: 065
     Dates: end: 20110101

REACTIONS (2)
  - ASTHMA [None]
  - CARDIAC FAILURE [None]
